FAERS Safety Report 7087098-X (Version None)
Quarter: 2010Q4

REPORT INFORMATION
  Report Type: 
  Country: None (occurrence: None)
  Receive Date: 20101106
  Receipt Date: 20101027
  Transmission Date: 20110411
  Serious: No
  Sender: FDA-Public Use
  Company Number: US-WYE-H18408510

PATIENT
  Sex: Female
  Weight: 52.21 kg

DRUGS (4)
  1. PREMPRO [Suspect]
     Indication: HORMONE REPLACEMENT THERAPY
     Dosage: 0.625/5 MG DAILY
     Route: 065
     Dates: start: 20050101, end: 20090101
  2. PREMPRO [Suspect]
     Dosage: 0.625/5MG DAILY
     Route: 065
     Dates: start: 20090101
  3. ICAPS [Concomitant]
  4. CENTRUM [Concomitant]

REACTIONS (5)
  - ALOPECIA [None]
  - DRUG EFFECT DECREASED [None]
  - FEELING ABNORMAL [None]
  - MENOMETRORRHAGIA [None]
  - SKIN WRINKLING [None]
